FAERS Safety Report 16276462 (Version 1)
Quarter: 2019Q2

REPORT INFORMATION
  Report Type: Spontaneous
  Country: US (occurrence: US)
  Receive Date: 20190505
  Receipt Date: 20190505
  Transmission Date: 20190711
  Serious: No
  Sender: FDA-Public Use
  Company Number: None

PATIENT
  Age: 41 Year
  Sex: Female
  Weight: 63 kg

DRUGS (1)
  1. HUMIRA [Suspect]
     Active Substance: ADALIMUMAB
     Indication: CROHN^S DISEASE
     Dosage: ?          OTHER FREQUENCY:ONCE A WEEK;OTHER ROUTE:INJECT UNDER SKIN?
     Dates: start: 20140505, end: 20181015

REACTIONS (3)
  - Disease recurrence [None]
  - Weight increased [None]
  - Staphylococcal infection [None]

NARRATIVE: CASE EVENT DATE: 20160505
